FAERS Safety Report 9221180 (Version 1)
Quarter: 2013Q2

REPORT INFORMATION
  Report Type: Spontaneous
  Country: US (occurrence: US)
  Receive Date: 20130409
  Receipt Date: 20130409
  Transmission Date: 20140414
  Serious: Yes (Other)
  Sender: FDA-Public Use
  Company Number: US-BRISTOL-MYERS SQUIBB COMPANY-18728162

PATIENT
  Sex: Female
  Weight: 90.7 kg

DRUGS (5)
  1. COUMADIN [Suspect]
  2. WARFARIN SODIUM [Suspect]
  3. CELEXA [Suspect]
  4. LEVOTHYROXINE [Concomitant]
  5. ALTACE [Concomitant]

REACTIONS (4)
  - Ankle fracture [Unknown]
  - Arthropathy [Unknown]
  - Balance disorder [Unknown]
  - Alopecia [Unknown]
